FAERS Safety Report 5606148-8 (Version None)
Quarter: 2008Q1

REPORT INFORMATION
  Report Type: 
  Country: None (occurrence: None)
  Receive Date: 20080129
  Receipt Date: 20070601
  Transmission Date: 20080703
  Serious: No
  Sender: FDA-Public Use
  Company Number: A0653840A

PATIENT
  Age: 35 Year
  Sex: Female

DRUGS (3)
  1. MEPRON [Suspect]
     Dosage: 750MG TWICE PER DAY
     Route: 048
     Dates: start: 20050601, end: 20051201
  2. ZITHROMAX [Concomitant]
  3. UNKNOWN MEDICATION [Concomitant]

REACTIONS (4)
  - CHILLS [None]
  - HYPERHIDROSIS [None]
  - MIGRAINE [None]
  - PYREXIA [None]
